FAERS Safety Report 4309898-9 (Version None)
Quarter: 2004Q1

REPORT INFORMATION
  Report Type: 
  Country: None (occurrence: None)
  Receive Date: 20040227
  Receipt Date: 20040109
  Transmission Date: 20041129
  Serious: No
  Sender: FDA-Public Use
  Company Number: MPS1-10144

PATIENT
  Age: 27 Year
  Sex: Female

DRUGS (3)
  1. ALDURAZYME [Suspect]
     Indication: MUCOPOLYSACCHARIDOSIS I
     Dosage: 0.58 MG/KG QWK IV
     Dates: start: 20030701
  2. TYLENOL (CAPLET) [Concomitant]
  3. BENADRYL [Concomitant]

REACTIONS (5)
  - CHILLS [None]
  - FATIGUE [None]
  - HEADACHE [None]
  - MYALGIA [None]
  - TINNITUS [None]
